FAERS Safety Report 22260316 (Version 1)
Quarter: 2023Q2

REPORT INFORMATION
  Report Type: Spontaneous
  Country: US (occurrence: US)
  Receive Date: 20230427
  Receipt Date: 20230427
  Transmission Date: 20230721
  Serious: No
  Sender: FDA-Public Use
  Company Number: US-MYOVANT SCIENCES GMBH-2023MYSCI0300570

PATIENT
  Age: 77 Year
  Sex: Male

DRUGS (10)
  1. ORGOVYX [Suspect]
     Active Substance: RELUGOLIX
     Indication: Prostate cancer
     Dosage: 360 MILLIGRAM, ONE TIME DOSE
     Route: 048
     Dates: start: 20220923, end: 20220923
  2. ORGOVYX [Suspect]
     Active Substance: RELUGOLIX
     Dosage: 120 MILLIGRAM, QD
     Route: 048
     Dates: start: 20220924, end: 20230319
  3. CLOPIDOGREL [Concomitant]
     Active Substance: CLOPIDOGREL BISULFATE
     Indication: Blood pressure abnormal
     Dosage: 75 MILLIGRAM
     Route: 065
     Dates: start: 2003
  4. LOSARTAN POTASSIUM [Concomitant]
     Active Substance: LOSARTAN POTASSIUM
     Indication: Blood pressure abnormal
     Dosage: 50 MILLIGRAM
     Route: 065
     Dates: start: 2003
  5. ATORVASTATIN [Concomitant]
     Active Substance: ATORVASTATIN
     Indication: Product used for unknown indication
     Dosage: 10 MILLIGRAM
     Route: 065
  6. METOPROLOL [Concomitant]
     Active Substance: METOPROLOL
     Indication: Product used for unknown indication
     Dosage: 20 MILLIGRAM
     Route: 065
  7. FUROSEMIDE [Concomitant]
     Active Substance: FUROSEMIDE
     Indication: Product used for unknown indication
     Dosage: 20 MILLIGRAM
     Route: 065
  8. VICTOZA [Concomitant]
     Active Substance: LIRAGLUTIDE
     Indication: Diabetes mellitus
     Dosage: UNK
     Route: 065
  9. HUMALOG [Concomitant]
     Active Substance: INSULIN LISPRO
     Indication: Diabetes mellitus
     Dosage: UNK
     Route: 065
  10. METAPRON [Concomitant]
     Indication: Blood pressure measurement
     Dosage: UNK
     Route: 065

REACTIONS (1)
  - Therapy interrupted [Unknown]

NARRATIVE: CASE EVENT DATE: 20230320
